FAERS Safety Report 4449957-3 (Version None)
Quarter: 2004Q3

REPORT INFORMATION
  Report Type: 
  Country: None (occurrence: None)
  Receive Date: 20040915
  Receipt Date: 20040723
  Transmission Date: 20050211
  Serious: Yes (Other)
  Sender: FDA-Public Use
  Company Number: 200415583US

PATIENT
  Sex: Female
  Weight: 71.8 kg

DRUGS (5)
  1. ARAVA [Suspect]
     Indication: RHEUMATOID ARTHRITIS
     Route: 048
     Dates: start: 20020108, end: 20040621
  2. MULTI-VITAMINS [Concomitant]
     Dosage: DOSE: UNK
  3. CALTRATE [Concomitant]
     Indication: OSTEOPOROSIS
     Dosage: DOSE: 2 TABLETS
  4. IBUPROFEN [Concomitant]
     Dosage: DOSE: UNK
  5. PRAVACHOL [Concomitant]
     Indication: BLOOD CHOLESTEROL

REACTIONS (10)
  - DIARRHOEA [None]
  - DIZZINESS [None]
  - FATIGUE [None]
  - NERVOUSNESS [None]
  - PALLOR [None]
  - RHINORRHOEA [None]
  - SOMNOLENCE [None]
  - SYNCOPE [None]
  - TREMOR [None]
  - WEIGHT DECREASED [None]
